FAERS Safety Report 6892120-7 (Version None)
Quarter: 2010Q3

REPORT INFORMATION
  Report Type: 
  Country: None (occurrence: None)
  Receive Date: 20100731
  Receipt Date: 20080131
  Transmission Date: 20110219
  Serious: No
  Sender: FDA-Public Use
  Company Number: US-PFIZER INC-2008011128

PATIENT
  Sex: Male
  Weight: 165 kg

DRUGS (8)
  1. NEURONTIN [Suspect]
     Indication: DIABETIC NEUROPATHY
     Dates: start: 20070201
  2. METFORMIN HCL [Concomitant]
  3. METOPROLOL TARTRATE [Concomitant]
  4. SYNTHROID [Concomitant]
  5. GLIPIZIDE [Concomitant]
  6. LISINOPRIL [Concomitant]
  7. CARDIOVASCULAR SYSTEM DRUGS [Concomitant]
  8. DRUG, UNSPECIFIED [Concomitant]

REACTIONS (6)
  - ANXIETY [None]
  - DIZZINESS [None]
  - HEADACHE [None]
  - HYPERHIDROSIS [None]
  - INSOMNIA [None]
  - NAUSEA [None]
